FAERS Safety Report 11776372 (Version 2)
Quarter: 2015Q4

REPORT INFORMATION
  Report Type: Spontaneous
  Country: IT (occurrence: IT)
  Receive Date: 20151125
  Receipt Date: 20151130
  Transmission Date: 20160304
  Serious: Yes (Other)
  Sender: FDA-Public Use
  Company Number: IT-TEVA-610165ACC

PATIENT
  Age: 77 Year
  Sex: Female
  Weight: 80 kg

DRUGS (5)
  1. ADRIBLASTINA - 200MG/100ML SOLUZIONE INIETTABILE [Suspect]
     Active Substance: DOXORUBICIN HYDROCHLORIDE
     Indication: NON-HODGKIN^S LYMPHOMA
     Dosage: 90 MG CYCLICAL
     Route: 042
     Dates: start: 20150818, end: 20150818
  2. BACTRIM - ROCHE S.P.A. [Concomitant]
     Indication: ANTIBIOTIC THERAPY
  3. ENDOXAN BAXTER - 1 G POLVERE PER SOLUZIONE INIETTABILE [Suspect]
     Active Substance: CYCLOPHOSPHAMIDE
     Indication: NON-HODGKIN^S LYMPHOMA
     Dosage: 1350 MG CYCLICAL
     Route: 042
     Dates: start: 20150818, end: 20150818
  4. VINCRISTINA TEVA ITALIA - 1 MG/ML SOLUZIONE INIETTABILE - TEVA ITALIA [Suspect]
     Active Substance: VINCRISTINE
     Indication: NON-HODGKIN^S LYMPHOMA
     Dosage: 2 MG CYCLICAL
     Route: 042
     Dates: start: 20150818, end: 20150818
  5. ZYLORIC - TEOFARMA S.R.L. [Concomitant]
     Indication: HYPERURICAEMIA

REACTIONS (3)
  - Neutropenia [Recovering/Resolving]
  - Oedema [Recovering/Resolving]
  - Thrombocytopenia [Recovering/Resolving]

NARRATIVE: CASE EVENT DATE: 20150827
